FAERS Safety Report 7068993-4 (Version None)
Quarter: 2010Q4

REPORT INFORMATION
  Report Type: 
  Country: None (occurrence: None)
  Receive Date: 20101028
  Receipt Date: 20101021
  Transmission Date: 20110411
  Serious: Yes (Other)
  Sender: FDA-Public Use
  Company Number: TW-GENZYME-CERZ-1001224

PATIENT

DRUGS (3)
  1. CEREZYME [Suspect]
     Indication: GAUCHER'S DISEASE
     Dosage: 60 U/KG, Q2W
     Route: 042
     Dates: start: 20100107
  2. CEREZYME [Suspect]
     Dosage: 60 U/KG, Q2W
     Route: 042
     Dates: start: 19990701, end: 20090819
  3. CEREZYME [Suspect]
     Dosage: 30 U/KG, Q2W
     Route: 042
     Dates: start: 20090819, end: 20100107

REACTIONS (1)
  - CHITOTRIOSIDASE INCREASED [None]
